FAERS Safety Report 4350388-5 (Version None)
Quarter: 2004Q2

REPORT INFORMATION
  Report Type: 
  Country: None (occurrence: None)
  Receive Date: 20040428
  Receipt Date: 20040428
  Transmission Date: 20050107
  Serious: Yes (Other)
  Sender: FDA-Public Use
  Company Number: None

PATIENT
  Age: 45 Year
  Sex: Female
  Weight: 72.5755 kg

DRUGS (3)
  1. AVONEX [Suspect]
     Indication: MULTIPLE SCLEROSIS
     Dosage: 30 MCG IM ONCE/WEEK
     Route: 030
  2. GLUCOPHAGE [Concomitant]
  3. ASPIRIN [Concomitant]

REACTIONS (3)
  - DIFFICULTY IN WALKING [None]
  - INJECTION SITE PAIN [None]
  - PAIN [None]
